FAERS Safety Report 9670790 (Version 1)
Quarter: 2013Q4

REPORT INFORMATION
  Report Type: Spontaneous
  Country: US (occurrence: US)
  Receive Date: 20131106
  Receipt Date: 20131106
  Transmission Date: 20140711
  Serious: Yes (Other)
  Sender: FDA-Public Use
  Company Number: US-BAYER-2013-134660

PATIENT
  Age: 44 Year
  Sex: Female
  Weight: 75 kg

DRUGS (13)
  1. YASMIN [Suspect]
     Route: 048
  2. CIPROFLOXACIN [Concomitant]
     Dosage: 500 MG, UNK
  3. TRIAMCINOLONE [Concomitant]
  4. DORYX [Concomitant]
  5. RETIN-A MICRO [Concomitant]
  6. DERMA-SMOOTHE [Concomitant]
  7. BETA-VAL [Concomitant]
  8. LIPITOR [Concomitant]
     Indication: HYPERLIPIDAEMIA
  9. SYNTHROID [Concomitant]
     Indication: HYPOTHYROIDISM
  10. NEXIUM [Concomitant]
     Indication: GASTROOESOPHAGEAL REFLUX DISEASE
  11. BENICAR [Concomitant]
     Indication: HYPERTENSION
  12. WELLBUTRIN [Concomitant]
     Indication: PREMENSTRUAL SYNDROME
  13. DOXYCYCLINE [Concomitant]
     Indication: ACNE

REACTIONS (1)
  - Transient ischaemic attack [None]
